FAERS Safety Report 20989229 (Version 3)
Quarter: 2022Q3

REPORT INFORMATION
  Report Type: Spontaneous
  Country: NG (occurrence: None)
  Receive Date: 20220621
  Receipt Date: 20220831
  Transmission Date: 20221027
  Serious: Yes (Death, Hospitalization, Other)
  Sender: FDA-Public Use
  Company Number: NG-ROCHE-3122275

PATIENT
  Sex: Male
  Weight: 74 kg

DRUGS (13)
  1. AVASTIN [Suspect]
     Active Substance: BEVACIZUMAB
     Indication: Hepatocellular carcinoma
     Dosage: H0238B12 - 12TH COURSE + H0238B17 - 13TH COURSE
     Route: 042
     Dates: start: 20220531
  2. TECENTRIQ [Suspect]
     Active Substance: ATEZOLIZUMAB
     Indication: Hepatocellular carcinoma
     Dosage: B0011B10, B0011B12 -12TH COURSE + B0011B22 - 13TH COURSE
     Route: 042
     Dates: start: 20220531
  3. PREDNISOLONE [Concomitant]
     Active Substance: PREDNISOLONE
  4. LACTULOSE [Concomitant]
     Active Substance: LACTULOSE
  5. CEFTRIAXONE [Concomitant]
     Active Substance: CEFTRIAXONE
  6. BISOPROLOL [Concomitant]
     Active Substance: BISOPROLOL
  7. ENTECAVIR [Concomitant]
     Active Substance: ENTECAVIR
  8. EXFORGE HCT [Concomitant]
     Active Substance: AMLODIPINE BESYLATE\HYDROCHLOROTHIAZIDE\VALSARTAN
  9. LIVOLIN FORTE [Concomitant]
  10. DF118 [Concomitant]
  11. TRAMADOL [Concomitant]
     Active Substance: TRAMADOL
  12. FUROSEMIDE [Concomitant]
     Active Substance: FUROSEMIDE
  13. SPIRONOLACTONE [Concomitant]
     Active Substance: SPIRONOLACTONE

REACTIONS (8)
  - Death [Fatal]
  - Diarrhoea [Unknown]
  - Weight decreased [Unknown]
  - Asthenia [Unknown]
  - Jaundice [Unknown]
  - Hepatic enzyme increased [Unknown]
  - Hepatic encephalopathy [Unknown]
  - Disease progression [Unknown]
